FAERS Safety Report 11524133 (Version 1)
Quarter: 2015Q3

REPORT INFORMATION
  Report Type: Spontaneous
  Country: US (occurrence: US)
  Receive Date: 20150918
  Receipt Date: 20150918
  Transmission Date: 20151125
  Serious: No
  Sender: FDA-Public Use
  Company Number: US-ROCHE-713851

PATIENT
  Sex: Female
  Weight: 54.4 kg

DRUGS (6)
  1. PEGASYS [Suspect]
     Active Substance: PEGINTERFERON ALFA-2A
     Indication: HEPATITIS C
     Route: 065
  2. XANAX [Concomitant]
     Active Substance: ALPRAZOLAM
     Route: 065
  3. COPEGUS [Suspect]
     Active Substance: RIBAVIRIN
     Indication: HEPATITIS C
     Route: 048
  4. ATIVAN [Concomitant]
     Active Substance: LORAZEPAM
     Route: 065
  5. NEXIUM [Concomitant]
     Active Substance: ESOMEPRAZOLE MAGNESIUM
     Route: 065
  6. LEXAPRO [Concomitant]
     Active Substance: ESCITALOPRAM OXALATE
     Route: 065

REACTIONS (11)
  - Insomnia [Unknown]
  - Hypophagia [Unknown]
  - Depression [Unknown]
  - Asthenia [Unknown]
  - Nausea [Unknown]
  - Injection site bruising [Unknown]
  - Product quality issue [Unknown]
  - Weight decreased [Unknown]
  - Abdominal pain upper [Unknown]
  - Anxiety [Unknown]
  - Appetite disorder [Unknown]
